FAERS Safety Report 10179978 (Version 2)
Quarter: 2014Q2

REPORT INFORMATION
  Report Type: Spontaneous
  Country: US (occurrence: US)
  Receive Date: 20140519
  Receipt Date: 20140519
  Transmission Date: 20141212
  Serious: No
  Sender: FDA-Public Use
  Company Number: US-BRISTOL-MYERS SQUIBB COMPANY-19412873

PATIENT
  Age: 62 Year
  Sex: Female
  Weight: 55.33 kg

DRUGS (2)
  1. BARACLUDE [Suspect]
     Indication: HEPATITIS B
     Route: 048
     Dates: start: 20130726
  2. METOPROLOL SUCCINATE [Concomitant]
     Route: 048

REACTIONS (1)
  - Rash pruritic [Not Recovered/Not Resolved]
